FAERS Safety Report 19253148 (Version 11)
Quarter: 2025Q1

REPORT INFORMATION
  Report Type: Report from Study
  Country: CA (occurrence: CA)
  Receive Date: 20210513
  Receipt Date: 20250226
  Transmission Date: 20250409
  Serious: Yes (Hospitalization, Other)
  Sender: TAKEDA
  Company Number: CA-TAKEDA-2021TUS029616

PATIENT
  Age: 51 Year
  Sex: Female

DRUGS (14)
  1. VEDOLIZUMAB [Suspect]
     Active Substance: VEDOLIZUMAB
     Indication: Crohn^s disease
  2. VEDOLIZUMAB [Suspect]
     Active Substance: VEDOLIZUMAB
  3. VEDOLIZUMAB [Suspect]
     Active Substance: VEDOLIZUMAB
  4. VEDOLIZUMAB [Suspect]
     Active Substance: VEDOLIZUMAB
  5. VEDOLIZUMAB [Suspect]
     Active Substance: VEDOLIZUMAB
  6. VEDOLIZUMAB [Suspect]
     Active Substance: VEDOLIZUMAB
  7. VEDOLIZUMAB [Suspect]
     Active Substance: VEDOLIZUMAB
     Dosage: 300 MILLIGRAM, Q4WEEKS
     Dates: start: 20231211
  8. VEDOLIZUMAB [Suspect]
     Active Substance: VEDOLIZUMAB
     Dosage: 300 MILLIGRAM, Q4WEEKS
  9. VEDOLIZUMAB [Suspect]
     Active Substance: VEDOLIZUMAB
     Dosage: 300 MILLIGRAM, Q4WEEKS
  10. VITAMIN B12 [Concomitant]
     Active Substance: CYANOCOBALAMIN
  11. VITAMIN B12 [Concomitant]
     Active Substance: CYANOCOBALAMIN
  12. IRON [Concomitant]
     Active Substance: IRON
  13. TENOFOVIR [Concomitant]
     Active Substance: TENOFOVIR
  14. VITAMIN D3 [Concomitant]
     Active Substance: CHOLECALCIFEROL

REACTIONS (23)
  - Gastrointestinal inflammation [Unknown]
  - White blood cell count decreased [Unknown]
  - Infection [Unknown]
  - Dehydration [Unknown]
  - Abdominal discomfort [Unknown]
  - Small intestinal obstruction [Recovered/Resolved]
  - Abdominal adhesions [Unknown]
  - Crohn^s disease [Recovered/Resolved]
  - Acidosis [Unknown]
  - Poor venous access [Unknown]
  - Frequent bowel movements [Unknown]
  - Diarrhoea [Unknown]
  - Defaecation urgency [Unknown]
  - Abdominal pain upper [Unknown]
  - Stress [Unknown]
  - Abdominal pain lower [Unknown]
  - Microcytic anaemia [Unknown]
  - Stress at work [Unknown]
  - Vitamin D deficiency [Unknown]
  - Off label use [Unknown]
  - Abdominal pain [Unknown]
  - Decreased appetite [Unknown]
  - Abdominal distension [Unknown]

NARRATIVE: CASE EVENT DATE: 20210510
